FAERS Safety Report 5141902-0 (Version None)
Quarter: 2006Q4

REPORT INFORMATION
  Report Type: 
  Country: None (occurrence: None)
  Receive Date: 20060919
  Receipt Date: 20060612
  Transmission Date: 20070319
  Serious: No
  Sender: FDA-Public Use
  Company Number: 2006US001325

PATIENT
  Age: 50 Year
  Sex: Female

DRUGS (8)
  1. VESICARE [Suspect]
     Dosage: 5 MG, ORAL
     Route: 048
  2. MICARDIS [Concomitant]
  3. DEMADEX [Concomitant]
  4. SYNTHROID [Concomitant]
  5. NEXIUM [Concomitant]
  6. HORMONES NOS [Concomitant]
  7. XANAX [Concomitant]
  8. LANEX (OMEPRAZOLE) [Concomitant]

REACTIONS (1)
  - DRUG INEFFECTIVE [None]
